FAERS Safety Report 18164601 (Version 2)
Quarter: 2020Q3

REPORT INFORMATION
  Report Type: Spontaneous
  Country: CA (occurrence: CA)
  Receive Date: 20200818
  Receipt Date: 20200902
  Transmission Date: 20201103
  Serious: Yes (Hospitalization, Other)
  Sender: FDA-Public Use
  Company Number: NVSC2020CA226140

PATIENT
  Age: 63 Year
  Sex: Male

DRUGS (98)
  1. ENTRESTO [Suspect]
     Active Substance: SACUBITRIL\VALSARTAN
     Dosage: 1 DF, BID (*90 DAYS)
     Route: 048
  2. ENTRESTO [Suspect]
     Active Substance: SACUBITRIL\VALSARTAN
     Dosage: 1 DF, BID (*30 DAYS)
     Route: 048
  3. FUROSEMIDE. [Suspect]
     Active Substance: FUROSEMIDE
     Dosage: 20 MG, QD (*90 DAYS)
     Route: 065
  4. MONTELUKAST SODIUM. [Suspect]
     Active Substance: MONTELUKAST SODIUM
     Indication: PRODUCT USED FOR UNKNOWN INDICATION
     Dosage: 10 MG, QD (*60 DAYS)
     Route: 065
  5. MONTELUKAST SODIUM. [Suspect]
     Active Substance: MONTELUKAST SODIUM
     Dosage: 10 MG, QD (*90 DAYS)
     Route: 048
  6. MONTELUKAST SODIUM. [Suspect]
     Active Substance: MONTELUKAST SODIUM
     Dosage: 10 MG, QD (*90 MINUTES)
     Route: 065
  7. AIROMIR [Suspect]
     Active Substance: ALBUTEROL SULFATE
     Dosage: 2 DF, QID (*25 DAYS) (AEROSOL)
     Route: 065
  8. APO?DOXY [Suspect]
     Active Substance: DOXYCYCLINE HYCLATE
     Dosage: 100 MG, BID (*7 DAYS)
     Route: 065
  9. APO?PREDNISONE [Suspect]
     Active Substance: PREDNISONE
     Dosage: 40 MG, QD (*7 DAYS)
     Route: 065
  10. INSPRA [Suspect]
     Active Substance: EPLERENONE
     Dosage: 50 MG, QD (*90 DAYS)
     Route: 065
  11. INSPRA [Suspect]
     Active Substance: EPLERENONE
     Dosage: 50 MG, QD (*89 DAYS)
     Route: 048
  12. CARVEDILOL. [Suspect]
     Active Substance: CARVEDILOL
     Indication: PRODUCT USED FOR UNKNOWN INDICATION
     Dosage: 6.25 MG, BID (*90 DAYS)
     Route: 065
  13. SINGULAIR [Suspect]
     Active Substance: MONTELUKAST SODIUM
     Indication: PRODUCT USED FOR UNKNOWN INDICATION
     Dosage: 10 MG, QD
     Route: 065
  14. VENTOLIN HFA [Suspect]
     Active Substance: ALBUTEROL SULFATE
     Indication: PRODUCT USED FOR UNKNOWN INDICATION
     Dosage: 2 DF (*10 DAYS)
     Route: 065
  15. VENTOLIN HFA [Suspect]
     Active Substance: ALBUTEROL SULFATE
     Dosage: 2 DF (*25 DAYS) (AEROSOL)
     Route: 065
  16. APO?DOXY [Suspect]
     Active Substance: DOXYCYCLINE HYCLATE
     Dosage: 100 MG, BID (*10 DAYS)
     Route: 065
  17. APO?PREDNISONE [Suspect]
     Active Substance: PREDNISONE
     Dosage: 25 MG, QD (*3 DAYS)
     Route: 065
  18. ATROVENT HFA [Suspect]
     Active Substance: IPRATROPIUM BROMIDE
     Indication: PRODUCT USED FOR UNKNOWN INDICATION
     Dosage: 20 UG, QID (*25 DAYS
     Route: 055
  19. BREO ELLIPTA [Suspect]
     Active Substance: FLUTICASONE FUROATE\VILANTEROL TRIFENATATE
     Indication: PRODUCT USED FOR UNKNOWN INDICATION
     Dosage: 1 DF, QD (*90 DAYS)
     Route: 055
  20. KETOROLAC [Suspect]
     Active Substance: KETOROLAC TROMETHAMINE
     Indication: PRODUCT USED FOR UNKNOWN INDICATION
     Dosage: 10 MG, TID (*5 DAYS)
     Route: 048
  21. ENTRESTO [Suspect]
     Active Substance: SACUBITRIL\VALSARTAN
     Dosage: 1 DF, BID (*90 DAYS)
     Route: 048
  22. APO?DOXY [Suspect]
     Active Substance: DOXYCYCLINE HYCLATE
     Dosage: 100 MG, BID (*10 DAYS)
     Route: 048
  23. APO?PREDNISONE [Suspect]
     Active Substance: PREDNISONE
     Dosage: 50 MG, QD (*5 DAYS)
     Route: 048
  24. APO?PREDNISONE [Suspect]
     Active Substance: PREDNISONE
     Dosage: 50 MG, QD (*5 DAYS)
     Route: 065
  25. APO?PREDNISONE [Suspect]
     Active Substance: PREDNISONE
     Dosage: 50 MG, QD (*5 DAYS)
     Route: 048
  26. APO?PREDNISONE [Suspect]
     Active Substance: PREDNISONE
     Dosage: 25 MG, QD (*3 DAYS)
     Route: 065
  27. COVERSYL PLUS [Suspect]
     Active Substance: INDAPAMIDE\PERINDOPRIL
     Dosage: 1 DF, QD (*90 DAYS)
     Route: 065
  28. COVERSYL PLUS [Suspect]
     Active Substance: INDAPAMIDE\PERINDOPRIL
     Dosage: 1 DF, QD (*90 DAYS)
     Route: 065
  29. INSPRA [Suspect]
     Active Substance: EPLERENONE
     Dosage: 50 MG, QD (*60 DAYS)
     Route: 065
  30. INSPRA [Suspect]
     Active Substance: EPLERENONE
     Dosage: 50 MG, QD (*90 DAYS)
     Route: 048
  31. UMECLIDINIUM BROMIDE [Suspect]
     Active Substance: UMECLIDINIUM BROMIDE
     Indication: PRODUCT USED FOR UNKNOWN INDICATION
     Dosage: 1 DF, QD
     Route: 065
  32. SEEBRI BREEZHALER [Suspect]
     Active Substance: GLYCOPYRROLATE
     Dosage: 50 UG, QD (*30 DAYS)
     Route: 055
  33. ENTRESTO [Suspect]
     Active Substance: SACUBITRIL\VALSARTAN
     Dosage: 1 DF, BID (*90 DAYS)
     Route: 048
  34. FUROSEMIDE. [Suspect]
     Active Substance: FUROSEMIDE
     Dosage: 20 MG, QD (*100 DAYS)
     Route: 065
  35. MONTELUKAST SODIUM. [Suspect]
     Active Substance: MONTELUKAST SODIUM
     Dosage: 10 MG, QD (*30 DAYS)
     Route: 065
  36. APO?PREDNISONE [Suspect]
     Active Substance: PREDNISONE
     Dosage: 50 MG, QD (*3 DAYS)
     Route: 065
  37. APO?PREDNISONE [Suspect]
     Active Substance: PREDNISONE
     Dosage: 25 MG, QD (*3 DAYS)
     Route: 065
  38. COVERSYL [Suspect]
     Active Substance: PERINDOPRIL
     Indication: PRODUCT USED FOR UNKNOWN INDICATION
     Dosage: 8 MG, QD (*90 DAYS)
     Route: 065
  39. COVERSYL PLUS [Suspect]
     Active Substance: INDAPAMIDE\PERINDOPRIL
     Indication: PRODUCT USED FOR UNKNOWN INDICATION
     Dosage: 1 DF, QD (*90 DAYS)
     Route: 065
  40. COVERSYL PLUS [Suspect]
     Active Substance: INDAPAMIDE\PERINDOPRIL
     Dosage: 1 DF, QD (*90 DAYS)
     Route: 065
  41. SALBUTAMOL SULFATE [Suspect]
     Active Substance: ALBUTEROL SULFATE
     Indication: PRODUCT USED FOR UNKNOWN INDICATION
     Dosage: 2 DF (*50 DAYS)
     Route: 055
  42. ENTRESTO [Suspect]
     Active Substance: SACUBITRIL\VALSARTAN
     Indication: PRODUCT USED FOR UNKNOWN INDICATION
     Dosage: 1 DF, BID (*90 DAYS)
     Route: 048
  43. ENTRESTO [Suspect]
     Active Substance: SACUBITRIL\VALSARTAN
     Dosage: 1 DF, BID (*90 DAYS)
     Route: 048
  44. ENTRESTO [Suspect]
     Active Substance: SACUBITRIL\VALSARTAN
     Dosage: 1 DF, BID (*90 DAYS)
     Route: 048
  45. MONTELUKAST SODIUM. [Suspect]
     Active Substance: MONTELUKAST SODIUM
     Dosage: 10 MG, QD (*90 DAYS)
     Route: 048
  46. APO?PREDNISONE [Suspect]
     Active Substance: PREDNISONE
     Dosage: 5 MG (*31 DAYS)
     Route: 065
  47. APO?PREDNISONE [Suspect]
     Active Substance: PREDNISONE
     Dosage: 50 MG, QD (*5 DAYS)
     Route: 048
  48. BREO ELLIPTA [Suspect]
     Active Substance: FLUTICASONE FUROATE\VILANTEROL TRIFENATATE
     Dosage: 1 DF, QD (*90 DAYS)
     Route: 055
  49. COVERSYL PLUS [Suspect]
     Active Substance: INDAPAMIDE\PERINDOPRIL
     Dosage: 1 DF, QD (*90 DAYS)
     Route: 065
  50. COVERSYL PLUS [Suspect]
     Active Substance: INDAPAMIDE\PERINDOPRIL
     Dosage: 1 DF, QD (*90 DAYS)
     Route: 065
  51. SALMETEROL/FLUTICASONPROPIONAAT [Suspect]
     Active Substance: FLUTICASONE PROPIONATE\SALMETEROL XINAFOATE
     Indication: PRODUCT USED FOR UNKNOWN INDICATION
     Dosage: 2 DF, BID (*30 DAYS)
     Route: 055
  52. INSPRA [Suspect]
     Active Substance: EPLERENONE
     Dosage: 50 MG, QD (*90 DAYS)
     Route: 065
  53. SALBUTAMOL SULFATE [Suspect]
     Active Substance: ALBUTEROL SULFATE
     Dosage: 2 DF (*50 DAYS)
     Route: 055
  54. ZENHALE [Suspect]
     Active Substance: FORMOTEROL FUMARATE\MOMETASONE FUROATE
     Indication: PRODUCT USED FOR UNKNOWN INDICATION
     Dosage: 2 DF, BID (*90 DAYS)
     Route: 065
  55. FUROSEMIDE. [Suspect]
     Active Substance: FUROSEMIDE
     Indication: PRODUCT USED FOR UNKNOWN INDICATION
     Dosage: 20 MG, QD (*90 DAYS)
     Route: 065
  56. MONTELUKAST SODIUM. [Suspect]
     Active Substance: MONTELUKAST SODIUM
     Dosage: 10 MG, QD (*14 DAYS)
     Route: 048
  57. MONTELUKAST SODIUM. [Suspect]
     Active Substance: MONTELUKAST SODIUM
     Dosage: 10 MG, QD (*90 DAYS)
     Route: 048
  58. PREGABALIN. [Suspect]
     Active Substance: PREGABALIN
     Indication: PRODUCT USED FOR UNKNOWN INDICATION
     Dosage: 50 MG, BID (*30 DAYS)
     Route: 048
  59. ALVESCO [Suspect]
     Active Substance: CICLESONIDE
     Dosage: 2 DF, BID (*90 DAYS)
     Route: 065
  60. ALVESCO [Suspect]
     Active Substance: CICLESONIDE
     Dosage: 2 DF, BID (*90 DAYS) (AEROSOL)
     Route: 065
  61. APO?BISOPROLOL [Suspect]
     Active Substance: BISOPROLOL FUMARATE
     Dosage: 0.25 MG, QD (*30 DAYS)
     Route: 065
  62. APO?DOXY [Suspect]
     Active Substance: DOXYCYCLINE HYCLATE
     Dosage: 100 MG (*5 DAYS)
     Route: 065
  63. APO?DOXY [Suspect]
     Active Substance: DOXYCYCLINE HYCLATE
     Dosage: 100 MG, BID (*10 DAYS)
     Route: 048
  64. APO?PREDNISONE [Suspect]
     Active Substance: PREDNISONE
     Dosage: 50 MG, QD (*4 DAYS)
     Route: 065
  65. APO?PREDNISONE [Suspect]
     Active Substance: PREDNISONE
     Dosage: 5 MG (*26 DAYS)
     Route: 065
  66. CHAMPIX [Suspect]
     Active Substance: VARENICLINE TARTRATE
     Indication: PRODUCT USED FOR UNKNOWN INDICATION
     Dosage: STATER PACK (*28 DAYS)
     Route: 065
  67. MEPOLIZUMAB [Suspect]
     Active Substance: MEPOLIZUMAB
     Indication: ASTHMA
     Dosage: 100 MG
     Route: 042
  68. ENTRESTO [Suspect]
     Active Substance: SACUBITRIL\VALSARTAN
     Dosage: 1 DF, BID (*90 DAYS)
     Route: 048
  69. ENTRESTO [Suspect]
     Active Substance: SACUBITRIL\VALSARTAN
     Dosage: 1 DF, BID (*90 DAYS)
     Route: 048
  70. MONTELUKAST SODIUM. [Suspect]
     Active Substance: MONTELUKAST SODIUM
     Dosage: 10 MG, QD (*90 DAYS)
     Route: 065
  71. AIROMIR [Suspect]
     Active Substance: ALBUTEROL SULFATE
     Dosage: 2 DF (*45 DAYS)
     Route: 065
  72. ALVESCO [Suspect]
     Active Substance: CICLESONIDE
     Indication: PRODUCT USED FOR UNKNOWN INDICATION
     Dosage: 2 DF, BID (*90 DAYS)
     Route: 065
  73. APO?BISOPROLOL [Suspect]
     Active Substance: BISOPROLOL FUMARATE
     Indication: PRODUCT USED FOR UNKNOWN INDICATION
     Dosage: 2.5 MG, QD (*7 DAYS)
     Route: 065
  74. APO?PREDNISONE [Suspect]
     Active Substance: PREDNISONE
     Indication: PRODUCT USED FOR UNKNOWN INDICATION
     Dosage: 50 MG, QD (*7 DAYS)
     Route: 065
  75. APO?PREDNISONE [Suspect]
     Active Substance: PREDNISONE
     Dosage: 25 MG, QD (*3 DAYS)
     Route: 065
  76. BREO ELLIPTA [Suspect]
     Active Substance: FLUTICASONE FUROATE\VILANTEROL TRIFENATATE
     Dosage: 1 DF, QD (*60 DAYS)
     Route: 055
  77. CYCLOBENZAPRINE. [Suspect]
     Active Substance: CYCLOBENZAPRINE
     Indication: PRODUCT USED FOR UNKNOWN INDICATION
     Dosage: 10 MG, TID (*5 DAYS)
     Route: 048
  78. INSPRA [Suspect]
     Active Substance: EPLERENONE
     Indication: PRODUCT USED FOR UNKNOWN INDICATION
     Dosage: 50 MG, QD (*90 DAYS)
     Route: 065
  79. INSPRA [Suspect]
     Active Substance: EPLERENONE
     Dosage: 50 MG, QD (*1 DAY)
     Route: 048
  80. IVABRADINE HYDROCHLORIDE [Suspect]
     Active Substance: IVABRADINE HYDROCHLORIDE
     Indication: PRODUCT USED FOR UNKNOWN INDICATION
     Dosage: 7.5 MG, BID (*90 DAYS)
     Route: 048
  81. SALBUTAMOL SULFATE [Suspect]
     Active Substance: ALBUTEROL SULFATE
     Dosage: 2 DF (*50 DAYS)
     Route: 055
  82. SALBUTAMOL SULFATE [Suspect]
     Active Substance: ALBUTEROL SULFATE
     Dosage: 2 DF (*50 DAYS)
     Route: 055
  83. MONTELUKAST/TEVA [Suspect]
     Active Substance: MONTELUKAST SODIUM
     Indication: PRODUCT USED FOR UNKNOWN INDICATION
     Dosage: 10 MG, QD (*30 DAYS)
     Route: 065
  84. SPIRONOLACTONE TEVA [Suspect]
     Active Substance: SPIRONOLACTONE
     Indication: PRODUCT USED FOR UNKNOWN INDICATION
     Dosage: 12.5 MG, QD (*90 DAYS)
     Route: 065
  85. ZENHALE [Suspect]
     Active Substance: FORMOTEROL FUMARATE\MOMETASONE FUROATE
     Dosage: (*90 DAYS)
     Route: 065
  86. FLU VACCINE VII [Concomitant]
     Active Substance: INFLUENZA VIRUS VACCINE
     Indication: PRODUCT USED FOR UNKNOWN INDICATION
     Route: 065
  87. SEEBRI BREEZHALER [Suspect]
     Active Substance: GLYCOPYRROLATE
     Indication: ASTHMA
     Dosage: 1 DF, QD (*30 DAYS)
     Route: 055
  88. SEEBRI BREEZHALER [Suspect]
     Active Substance: GLYCOPYRROLATE
     Dosage: 50 UG, QD (*30 DAYS)
     Route: 055
  89. MONTELUKAST SODIUM. [Suspect]
     Active Substance: MONTELUKAST SODIUM
     Dosage: 10 MG, QD (*30 DAYS)
     Route: 065
  90. AMLODIPINE [Suspect]
     Active Substance: AMLODIPINE BESYLATE
     Indication: PRODUCT USED FOR UNKNOWN INDICATION
     Dosage: 2.5 MG, QD *30 DAYS
     Route: 065
  91. AIROMIR [Suspect]
     Active Substance: ALBUTEROL SULFATE
     Indication: PRODUCT USED FOR UNKNOWN INDICATION
     Dosage: 2 DF (*45 DAYS)
     Route: 055
  92. APO?DOXY [Suspect]
     Active Substance: DOXYCYCLINE HYCLATE
     Indication: PRODUCT USED FOR UNKNOWN INDICATION
     Dosage: 100 MG, BID (*10 DAYS)
     Route: 048
  93. APO?PREDNISONE [Suspect]
     Active Substance: PREDNISONE
     Dosage: 5 MG (*35 DAYS)
     Route: 065
  94. APO?TRAMADOL/ACET [Suspect]
     Active Substance: ACETAMINOPHEN\TRAMADOL HYDROCHLORIDE
     Indication: PRODUCT USED FOR UNKNOWN INDICATION
     Dosage: (*5 DAYS)
     Route: 048
  95. BREO ELLIPTA [Suspect]
     Active Substance: FLUTICASONE FUROATE\VILANTEROL TRIFENATATE
     Dosage: 1 DF, QD (*90 DAYS)
     Route: 055
  96. INSPRA [Suspect]
     Active Substance: EPLERENONE
     Dosage: 50 MG, QD (*90 DAYS)
     Route: 065
  97. AZITHROMYCIN ANHYDROUS. [Suspect]
     Active Substance: AZITHROMYCIN ANHYDROUS
     Indication: PRODUCT USED FOR UNKNOWN INDICATION
     Dosage: 250 MG
     Route: 065
  98. SALBUTAMOL SULFATE [Suspect]
     Active Substance: ALBUTEROL SULFATE
     Dosage: 2 DF (*50 DAYS)
     Route: 055

REACTIONS (14)
  - Breath sounds abnormal [Unknown]
  - Asthma-chronic obstructive pulmonary disease overlap syndrome [Unknown]
  - Cardiomyopathy [Unknown]
  - Drug intolerance [Unknown]
  - Eosinophilia [Unknown]
  - Ischaemic cardiomyopathy [Unknown]
  - Bronchial hyperreactivity [Unknown]
  - Cardiac disorder [Unknown]
  - Bronchitis [Unknown]
  - Asthma [Unknown]
  - Dyspnoea [Unknown]
  - Obstructive airways disorder [Unknown]
  - Pulmonary function test abnormal [Unknown]
  - Drug ineffective [Unknown]
